FAERS Safety Report 25169187 (Version 4)
Quarter: 2025Q3

REPORT INFORMATION
  Report Type: Spontaneous
  Country: US (occurrence: US)
  Receive Date: 20250407
  Receipt Date: 20250825
  Transmission Date: 20251021
  Serious: Yes (Hospitalization, Other)
  Sender: Unknown Manufacturer
  Company Number: US-THERATECHNOLOGIES INC.-2025-THE-IBA-000087

PATIENT

DRUGS (7)
  1. TROGARZO [Suspect]
     Active Substance: IBALIZUMAB-UIYK
     Indication: HIV infection
     Route: 042
     Dates: start: 20180718
  2. TROGARZO [Suspect]
     Active Substance: IBALIZUMAB-UIYK
     Route: 042
  3. EPINEPHRINE [Concomitant]
     Active Substance: EPINEPHRINE
     Indication: Product used for unknown indication
     Route: 065
  4. PREZISTA [Concomitant]
     Active Substance: DARUNAVIR ETHANOLATE
     Indication: Product used for unknown indication
     Route: 065
  5. RITONAVIR [Concomitant]
     Active Substance: RITONAVIR
     Indication: Product used for unknown indication
     Route: 065
  6. RUKOBIA [Concomitant]
     Active Substance: FOSTEMSAVIR TROMETHAMINE
     Indication: Product used for unknown indication
     Route: 065
  7. SODIUM CHLORIDE [Concomitant]
     Active Substance: SODIUM CHLORIDE
     Indication: Product used for unknown indication
     Route: 065

REACTIONS (8)
  - Clostridium difficile infection [Unknown]
  - Colitis [Unknown]
  - Influenza [Unknown]
  - Hospitalisation [Unknown]
  - Hypoaesthesia [Unknown]
  - Muscular weakness [Unknown]
  - Paraesthesia [Unknown]
  - Product dose omission issue [Unknown]

NARRATIVE: CASE EVENT DATE: 20250301
